FAERS Safety Report 7980163-1 (Version None)
Quarter: 2011Q4

REPORT INFORMATION
  Report Type: 
  Country: None (occurrence: None)
  Receive Date: 20111214
  Receipt Date: 20111208
  Transmission Date: 20120403
  Serious: Yes (Hospitalization)
  Sender: FDA-Public Use
  Company Number: PHHO2011FR020681

PATIENT
  Sex: Female
  Weight: 43 kg

DRUGS (3)
  1. METHOTREXATE [Concomitant]
  2. PURINETHOL [Concomitant]
  3. IMATINIB MESYLATE [Suspect]
     Indication: ACUTE LYMPHOCYTIC LEUKAEMIA
     Dosage: 600 MG, QD
     Route: 048
     Dates: start: 20070129

REACTIONS (1)
  - POST LUMBAR PUNCTURE SYNDROME [None]
